FAERS Safety Report 15887584 (Version 1)
Quarter: 2019Q1

REPORT INFORMATION
  Report Type: Spontaneous
  Country: FR (occurrence: FR)
  Receive Date: 20190130
  Receipt Date: 20190130
  Transmission Date: 20190417
  Serious: Yes (Other)
  Sender: FDA-Public Use
  Company Number: FR-SUN PHARMACEUTICAL INDUSTRIES LTD-2019RR-197202

PATIENT
  Sex: Female

DRUGS (1)
  1. ZOLPIDEM [Suspect]
     Active Substance: ZOLPIDEM\ZOLPIDEM TARTRATE
     Indication: CHEMICAL SUBMISSION
     Dosage: IN TOTAL
     Route: 065
     Dates: start: 20170619, end: 20170619

REACTIONS (2)
  - Amnesia [Recovered/Resolved]
  - Victim of chemical submission [Recovered/Resolved]

NARRATIVE: CASE EVENT DATE: 20170619
